FAERS Safety Report 6180665-7 (Version None)
Quarter: 2009Q2

REPORT INFORMATION
  Report Type: 
  Country: None (occurrence: None)
  Receive Date: 20090428
  Receipt Date: 20090403
  Transmission Date: 20091009
  Serious: Yes (Life-Threatening, Other)
  Sender: FDA-Public Use
  Company Number: THYM-1000863

PATIENT
  Age: 66 Year
  Sex: Female
  Weight: 82.9 kg

DRUGS (13)
  1. THYMOGLOBULIN [Suspect]
     Indication: PROPHYLAXIS AGAINST TRANSPLANT REJECTION
     Dosage: 125 MG, QD, INTRAVENOUS
     Route: 042
     Dates: start: 20081201, end: 20081202
  2. SOLU-MEDROL [Concomitant]
  3. ACETAMINOPHEN [Concomitant]
  4. BENADRYL (ZINC OXIDE) [Concomitant]
  5. SINGULAIR [Concomitant]
  6. PEPCID (FAMOTIDINE, MAGNESIUM HYDROXIDE) [Concomitant]
  7. CEFAZOLIN [Concomitant]
  8. SOLUMEDROL IV TAPER (SOLUMEDROL IV TAPER) [Concomitant]
  9. CELLCEPT [Concomitant]
  10. ASPIRIN (SALICYLAMIDE) [Concomitant]
  11. NEXIUM (ESOMEPRAZOLE SODIUM) [Concomitant]
  12. THERAGRAN (VITAMINS NOS) [Concomitant]
  13. RED BLOOD CELLS [Concomitant]

REACTIONS (6)
  - ACUTE MYOCARDIAL INFARCTION [None]
  - ATRIAL FIBRILLATION [None]
  - COMPLICATIONS OF TRANSPLANTED KIDNEY [None]
  - HYPOTENSION [None]
  - PULMONARY OEDEMA [None]
  - PYREXIA [None]
